FAERS Safety Report 5413660-3 (Version None)
Quarter: 2007Q3

REPORT INFORMATION
  Report Type: 
  Country: None (occurrence: None)
  Receive Date: 20070814
  Receipt Date: 20070809
  Transmission Date: 20080115
  Serious: Yes (Other)
  Sender: FDA-Public Use
  Company Number: PHEH2007US00909

PATIENT
  Age: 68 Year
  Sex: Female

DRUGS (2)
  1. ENABLEX [Suspect]
     Indication: POLLAKIURIA
     Dosage: 15 MG, QD
     Dates: start: 20061201, end: 20070125
  2. ROLAIDS [Suspect]
     Indication: DYSPEPSIA

REACTIONS (8)
  - CONSTIPATION [None]
  - DRY EYE [None]
  - DRY MOUTH [None]
  - DYSPEPSIA [None]
  - GLAUCOMA [None]
  - POLLAKIURIA [None]
  - RASH ERYTHEMATOUS [None]
  - TOOTH FRACTURE [None]
